FAERS Safety Report 20990715 (Version 1)
Quarter: 2022Q2

REPORT INFORMATION
  Report Type: Report from Study
  Country: CA (occurrence: CA)
  Receive Date: 20220622
  Receipt Date: 20220622
  Transmission Date: 20220721
  Serious: Yes (Other)
  Sender: FDA-Public Use
  Company Number: CA-JNJFOC-20220630049

PATIENT
  Age: 33 Year
  Sex: Female
  Weight: 112 kg

DRUGS (1)
  1. REMICADE [Suspect]
     Active Substance: INFLIXIMAB
     Indication: Crohn^s disease
     Route: 041
     Dates: start: 20150513, end: 20150604

REACTIONS (9)
  - Drug intolerance [Recovered/Resolved]
  - Blood pressure increased [Unknown]
  - Infusion related reaction [Recovering/Resolving]
  - Heart rate increased [Unknown]
  - Vomiting [Unknown]
  - Flushing [Recovering/Resolving]
  - Dyspnoea [Recovering/Resolving]
  - Hyperhidrosis [Unknown]
  - Treatment failure [Unknown]

NARRATIVE: CASE EVENT DATE: 20150101
